FAERS Safety Report 4703955-0 (Version None)
Quarter: 2005Q2

REPORT INFORMATION
  Report Type: 
  Country: None (occurrence: None)
  Receive Date: 20050630
  Receipt Date: 20050309
  Transmission Date: 20051028
  Serious: Yes (Hospitalization, Disabling)
  Sender: FDA-Public Use
  Company Number: US-MERCK-0503USA02103

PATIENT
  Age: 78 Year
  Sex: Male
  Weight: 94 kg

DRUGS (13)
  1. VIOXX [Suspect]
     Indication: ARTHRITIS
     Route: 048
     Dates: start: 20010716, end: 20040823
  2. VIOXX [Suspect]
     Indication: ARTHRALGIA
     Route: 048
     Dates: start: 20010716, end: 20040823
  3. PLAVIX [Concomitant]
     Route: 065
  4. CORDARONE [Concomitant]
     Route: 048
  5. LASIX [Concomitant]
     Route: 065
  6. LIPITOR [Concomitant]
     Route: 065
  7. ZYRTEC [Concomitant]
     Route: 065
  8. PRILOSEC [Concomitant]
     Route: 065
  9. COUMADIN [Concomitant]
     Route: 065
  10. AMOXIL [Concomitant]
     Route: 065
  11. ALDACTONE [Concomitant]
     Route: 065
  12. TOPROL-XL [Concomitant]
     Route: 065
  13. HYZAAR [Concomitant]
     Route: 065

REACTIONS (8)
  - ANAEMIA [None]
  - ATRIAL FIBRILLATION [None]
  - CARDIAC FAILURE CONGESTIVE [None]
  - CARDIOMYOPATHY [None]
  - HYPOXIA [None]
  - INTERMITTENT CLAUDICATION [None]
  - MITRAL VALVE INCOMPETENCE [None]
  - POLYTRAUMATISM [None]
